FAERS Safety Report 23440728 (Version 1)
Quarter: 2024Q1

REPORT INFORMATION
  Report Type: Spontaneous
  Country: US (occurrence: US)
  Receive Date: 20240125
  Receipt Date: 20240125
  Transmission Date: 20240410
  Serious: No
  Sender: FDA-Public Use
  Company Number: US-BRISTOL-MYERS SQUIBB COMPANY-2024-008000

PATIENT
  Age: 66 Year
  Sex: Female

DRUGS (1)
  1. LENALIDOMIDE [Suspect]
     Active Substance: LENALIDOMIDE
     Indication: Plasma cell myeloma
     Route: 048

REACTIONS (6)
  - Sinusitis [Unknown]
  - Bronchitis [Unknown]
  - Pain [Unknown]
  - Cough [Unknown]
  - Gastrointestinal motility disorder [Unknown]
  - Psychiatric symptom [Unknown]

NARRATIVE: CASE EVENT DATE: 20231101
